FAERS Safety Report 4622482-2 (Version None)
Quarter: 2005Q1

REPORT INFORMATION
  Report Type: 
  Country: None (occurrence: None)
  Receive Date: 20050317
  Receipt Date: 20040513
  Transmission Date: 20050727
  Serious: Yes (Hospitalization)
  Sender: FDA-Public Use
  Company Number: PHEH2004US05342

PATIENT
  Age: 10 Year
  Sex: Male

DRUGS (2)
  1. TRILEPTAL [Suspect]
     Indication: OPPOSITIONAL DEFIANT DISORDER
     Dosage: 75 MG, BID, ORAL
     Route: 048
     Dates: start: 20040401
  2. RISPERDAL [Concomitant]

REACTIONS (3)
  - BLOOD GLUCOSE INCREASED [None]
  - FEELING ABNORMAL [None]
  - LETHARGY [None]
